FAERS Safety Report 9853574 (Version 1)
Quarter: 2014Q1

REPORT INFORMATION
  Report Type: Spontaneous
  Country: GB (occurrence: GB)
  Receive Date: 20140129
  Receipt Date: 20140129
  Transmission Date: 20141002
  Serious: Yes (Other)
  Sender: FDA-Public Use
  Company Number: GB-TEVA-459085ISR

PATIENT
  Sex: Female

DRUGS (3)
  1. LIDOCAINE [Suspect]
     Indication: DENTAL OPERATION
     Dosage: UNKNOWN DOSE
  2. LIDOCAINE [Suspect]
     Indication: COLECTOMY
     Dosage: UNKNOWN DOSE
  3. LIDOCAINE [Suspect]
     Indication: EPIDURAL ANAESTHESIA
     Dosage: UNKNOWN DOSE

REACTIONS (2)
  - Muscle twitching [Unknown]
  - Muscle spasms [Unknown]
